FAERS Safety Report 5765502-4 (Version None)
Quarter: 2008Q2

REPORT INFORMATION
  Report Type: 
  Country: None (occurrence: None)
  Receive Date: 20080611
  Receipt Date: 20080604
  Transmission Date: 20081010
  Serious: Yes (Other)
  Sender: FDA-Public Use
  Company Number: B0524519A

PATIENT
  Age: 45 Year
  Sex: Female
  Weight: 69 kg

DRUGS (5)
  1. REQUIP [Suspect]
     Indication: PARKINSON'S DISEASE
     Dosage: 24MG PER DAY
     Route: 065
     Dates: start: 20080528, end: 20080601
  2. DOMPERIDONE [Concomitant]
     Dosage: 10MG PER DAY
     Route: 065
     Dates: start: 20080528, end: 20080530
  3. STALEVO 100 [Concomitant]
     Indication: PARKINSON'S DISEASE
     Dosage: 100MG THREE TIMES PER DAY
     Route: 065
  4. SYMMETREL [Concomitant]
     Indication: PARKINSON'S DISEASE
     Route: 065
     Dates: end: 20080527
  5. CALCIUM [Concomitant]
     Dosage: 2TAB THREE TIMES PER DAY
     Route: 065
     Dates: start: 20080401

REACTIONS (16)
  - ABNORMAL BEHAVIOUR [None]
  - ANXIETY [None]
  - DEPRESSED MOOD [None]
  - DEPRESSION [None]
  - EUPHORIC MOOD [None]
  - FATIGUE [None]
  - FEAR [None]
  - FEELING ABNORMAL [None]
  - HEADACHE [None]
  - INSOMNIA [None]
  - LOGORRHOEA [None]
  - PANIC REACTION [None]
  - PSYCHOMOTOR HYPERACTIVITY [None]
  - RESTLESSNESS [None]
  - TENSION [None]
  - THINKING ABNORMAL [None]
